FAERS Safety Report 7357143-2 (Version None)
Quarter: 2011Q1

REPORT INFORMATION
  Report Type: 
  Country: None (occurrence: None)
  Receive Date: 20110308
  Receipt Date: 20110224
  Transmission Date: 20110831
  Serious: Yes (Hospitalization)
  Sender: FDA-Public Use
  Company Number: 2011000998

PATIENT
  Age: 80 Year
  Sex: Male

DRUGS (10)
  1. AVIDART [Concomitant]
  2. OMEPRAZOLE [Concomitant]
  3. UROLOSIN (TAMSULOSIN HYDROCHLORIDE) [Concomitant]
  4. SIMVASTATINA (SIMVASTATIN) [Concomitant]
  5. NOCTAMID (LORMETAZEPAM) [Concomitant]
  6. DUPHALAC [Concomitant]
  7. ERLOTINIB (ERLOTINIB) (TABLET) (ERLOTINB) [Suspect]
     Indication: NON-SMALL CELL LUNG CANCER
     Dosage: 150 MG, DAILY, ORAL
     Route: 048
     Dates: start: 20101027, end: 20101226
  8. DURAGESIC-100 [Concomitant]
  9. ACTIQ [Concomitant]
  10. ACETAMINOPHEN [Concomitant]

REACTIONS (3)
  - PULMONARY EMBOLISM [None]
  - RESPIRATORY TRACT INFECTION [None]
  - THROMBOCYTOPENIA [None]
